FAERS Safety Report 8857527 (Version 2)
Quarter: 2012Q4

REPORT INFORMATION
  Report Type: 
  Country: US (occurrence: US)
  Receive Date: 20121024
  Receipt Date: 20121116
  Transmission Date: 20130627
  Serious: Yes (Life-Threatening, Disabling, Other)
  Sender: FDA-Public Use
  Company Number: US-GLAXOSMITHKLINE-A0998386A

PATIENT
  Age: 83 Year
  Sex: Female

DRUGS (12)
  1. PROPAFENONE HYDROCHLORIDE [Suspect]
     Indication: ATRIAL FIBRILLATION
     Dosage: 225MG Three times per day
     Route: 048
     Dates: start: 201208
  2. LEVODOPA/CARBIDOPA [Suspect]
     Indication: PARKINSON^S DISEASE
     Dosage: 600MG Per day
     Route: 048
     Dates: start: 2010, end: 20121020
  3. RYTHMOL SR [Suspect]
     Indication: ATRIAL FIBRILLATION
     Dates: start: 2007
  4. TRANDOLAPRIL [Concomitant]
  5. POTASSIUM CHLORIDE [Concomitant]
  6. HYDROCHLOROTHIAZIDE [Concomitant]
  7. MAGNESIUM [Concomitant]
  8. ASPIRIN [Concomitant]
  9. NAMENDA [Concomitant]
  10. EVISTA [Concomitant]
  11. FAMOTIDINE [Concomitant]
  12. ALPRAZOLAM [Concomitant]

REACTIONS (8)
  - Coma [Recovered/Resolved]
  - Tachycardia [Recovered/Resolved]
  - Somnolence [Unknown]
  - Somnolence [Unknown]
  - Drug interaction [Unknown]
  - Hypotension [Unknown]
  - Speech disorder [Unknown]
  - Dysphagia [None]
